FAERS Safety Report 4922502-1 (Version None)
Quarter: 2006Q1

REPORT INFORMATION
  Report Type: 
  Country: None (occurrence: None)
  Receive Date: 20060224
  Receipt Date: 20060213
  Transmission Date: 20060701
  Serious: Yes (Other)
  Sender: FDA-Public Use
  Company Number: US-ROCHE-436595

PATIENT
  Sex: Female

DRUGS (1)
  1. BONIVA [Suspect]
     Indication: DRUG USE FOR UNKNOWN INDICATION
     Route: 048
     Dates: start: 20051215, end: 20060215

REACTIONS (5)
  - BREAST MASS [None]
  - CHEST DISCOMFORT [None]
  - FATIGUE [None]
  - INSOMNIA [None]
  - STOMACH DISCOMFORT [None]
